FAERS Safety Report 6516242-5 (Version None)
Quarter: 2009Q4

REPORT INFORMATION
  Report Type: 
  Country: None (occurrence: None)
  Receive Date: 20091223
  Receipt Date: 20091218
  Transmission Date: 20100525
  Serious: Yes (Death)
  Sender: FDA-Public Use
  Company Number: US-WYE-H12115209

PATIENT
  Sex: Male

DRUGS (13)
  1. EFFEXOR XR [Suspect]
     Indication: DEPRESSION
     Route: 048
     Dates: start: 20081212, end: 20081224
  2. EFFEXOR XR [Suspect]
     Indication: GENERALISED ANXIETY DISORDER
     Route: 048
     Dates: start: 20081228, end: 20081228
  3. EFFEXOR XR [Suspect]
     Route: 048
     Dates: start: 20081229, end: 20081229
  4. METOPROLOL TARTRATE [Concomitant]
     Dosage: 50 MG, FREQUENCY NOT SPECIFIED
  5. PLAVIX [Concomitant]
     Dosage: 75 MG, FREQUENCY NOT SPECIFIED
  6. ASPIRIN [Concomitant]
     Dosage: 81 MG, FREQUENCY NOT SPECIFIED
  7. VITAMIN D3 [Concomitant]
     Indication: VITAMIN D DEFICIENCY
     Dates: start: 20080101
  8. POTASSIUM [Concomitant]
     Dosage: UNKNOWN
  9. NIASPAN [Concomitant]
     Dosage: UNKNOWN
  10. ZEGERID [Concomitant]
     Dosage: UNKNOWN
  11. TESTOSTERONE [Concomitant]
     Indication: BLOOD TESTOSTERONE DECREASED
     Dosage: ^INJECTIONS^
     Dates: start: 20080101
  12. CRESTOR [Concomitant]
     Dosage: 10 MG, FREQUENCY NOT SPECIFIED
  13. DIOVAN [Concomitant]
     Dosage: UNKNOWN

REACTIONS (11)
  - AKATHISIA [None]
  - ANXIETY [None]
  - COMPLETED SUICIDE [None]
  - CONDITION AGGRAVATED [None]
  - DRUG INEFFECTIVE [None]
  - FEELING ABNORMAL [None]
  - GUN SHOT WOUND [None]
  - RASH [None]
  - RESTLESSNESS [None]
  - TREMOR [None]
  - WEIGHT DECREASED [None]
